FAERS Safety Report 17437646 (Version 2)
Quarter: 2020Q1

REPORT INFORMATION
  Report Type: Report from Study
  Country: US (occurrence: US)
  Receive Date: 20200219
  Receipt Date: 20200221
  Transmission Date: 20200409
  Serious: Yes (Hospitalization, Other)
  Sender: FDA-Public Use
  Company Number: US-GILEAD-2020-0445316

PATIENT
  Age: 43 Year
  Sex: Male

DRUGS (17)
  1. GABAPENTIN. [Concomitant]
     Active Substance: GABAPENTIN
  2. VITAMIN D [VITAMIN D NOS] [Concomitant]
     Active Substance: VITAMIN D NOS
  3. ZENPEP [Concomitant]
     Active Substance: PANCRELIPASE AMYLASE\PANCRELIPASE LIPASE\PANCRELIPASE PROTEASE
  4. NEXIUM I.V. [Concomitant]
     Active Substance: ESOMEPRAZOLE SODIUM
  5. DURAGESIC [ORPHENADRINE CITRATE;PARACETAMOL] [Concomitant]
     Active Substance: ACETAMINOPHEN\ORPHENADRINE CITRATE
  6. AZTREONAM LYSINE [Suspect]
     Active Substance: AZTREONAM LYSINE
     Indication: CYSTIC FIBROSIS
     Dosage: 75 MG, Q8H  28 DAYS ON, THEN 28 DAYS OFF, THEN REPEAT CYCLE
     Route: 055
     Dates: start: 20190819
  7. HUMALOG [Concomitant]
     Active Substance: INSULIN LISPRO
  8. REMERON [Concomitant]
     Active Substance: MIRTAZAPINE
  9. AZITHROMYCIN ANHYDROUS. [Concomitant]
     Active Substance: AZITHROMYCIN ANHYDROUS
  10. PHENERGAN [Concomitant]
     Active Substance: PROMETHAZINE HYDROCHLORIDE
  11. TPN [NICOTINAMIDE;PYRIDOXINE HYDROCHLORIDE;TYROSINE] [Concomitant]
     Active Substance: NIACINAMIDE\PYRIDOXINE HYDROCHLORIDE\TYROSINE
  12. LEVEMIR [Concomitant]
     Active Substance: INSULIN DETEMIR
  13. MULTIVITAMINS [VITAMINS NOS] [Concomitant]
     Active Substance: VITAMINS
  14. LEVAQUIN [Concomitant]
     Active Substance: LEVOFLOXACIN
  15. HYPERSAL [Concomitant]
     Active Substance: SODIUM CHLORIDE
  16. VITAMIN A [RETINOL] [Concomitant]
     Active Substance: RETINOL
  17. PULMOZYME [Concomitant]
     Active Substance: DORNASE ALFA

REACTIONS (1)
  - Device related sepsis [Unknown]
